FAERS Safety Report 12857779 (Version 1)
Quarter: 2016Q4

REPORT INFORMATION
  Report Type: Spontaneous
  Country: US (occurrence: US)
  Receive Date: 20161018
  Receipt Date: 20161018
  Transmission Date: 20170207
  Serious: No
  Sender: FDA-Public Use
  Company Number: US-PERRIGO-15US010416

PATIENT
  Age: 32 Year
  Sex: Female
  Weight: 132.88 kg

DRUGS (1)
  1. NICOTINE POLACRILEX [Suspect]
     Active Substance: NICOTINE
     Indication: SMOKING CESSATION THERAPY
     Dosage: 4 MG, SINGLE
     Route: 002
     Dates: start: 20151001, end: 20151001

REACTIONS (2)
  - Oral mucosal blistering [Not Recovered/Not Resolved]
  - Tongue blistering [Not Recovered/Not Resolved]

NARRATIVE: CASE EVENT DATE: 20151001
